FAERS Safety Report 4613966-1 (Version None)
Quarter: 2005Q1

REPORT INFORMATION
  Report Type: 
  Country: None (occurrence: None)
  Receive Date: 20050321
  Receipt Date: 20041207
  Transmission Date: 20050727
  Serious: Yes (Hospitalization)
  Sender: FDA-Public Use
  Company Number: BE-ROCHE-388439

PATIENT
  Age: 70 Year
  Sex: Male
  Weight: 61 kg

DRUGS (5)
  1. CAPECITABINE [Suspect]
     Dosage: ADMINISTERED ON DAYS 1-14 FOLLOWED BY 7 DAYS REST IN EACH CYCLE.
     Route: 048
     Dates: start: 20040927, end: 20041122
  2. CAPECITABINE [Suspect]
     Dosage: ADMINISTERED ON DAYS 1-14 FOLLOWED BY 7 DAYS REST IN EACH CYCLE.
     Route: 048
     Dates: start: 20041215
  3. OXALIPLATIN [Suspect]
     Route: 042
     Dates: start: 20041027
  4. TENORMIN [Concomitant]
  5. LITICAN [Concomitant]
     Dosage: PRN.
     Dates: start: 20041019

REACTIONS (1)
  - ILEITIS [None]
